FAERS Safety Report 4819300-6 (Version None)
Quarter: 2005Q4

REPORT INFORMATION
  Report Type: 
  Country: None (occurrence: None)
  Receive Date: 20051103
  Receipt Date: 20041130
  Transmission Date: 20060501
  Serious: Yes (Hospitalization)
  Sender: FDA-Public Use
  Company Number: DE-ROCHE-387682

PATIENT
  Age: 65 Year
  Sex: Male
  Weight: 83 kg

DRUGS (19)
  1. DACLIZUMAB [Suspect]
     Route: 042
     Dates: start: 20041104, end: 20041230
  2. MYCOPHENOLATE MOFETIL [Suspect]
     Route: 048
     Dates: start: 20041104, end: 20050421
  3. MYCOPHENOLATE MOFETIL [Suspect]
     Route: 048
     Dates: start: 20050422
  4. TACROLIMUS [Suspect]
     Route: 048
     Dates: start: 20041104
  5. PREDNISOLONE [Suspect]
     Route: 048
     Dates: start: 20041104
  6. LOCOL [Concomitant]
     Route: 048
  7. L-THYROXINE [Concomitant]
     Route: 048
  8. ASPIRIN [Concomitant]
     Route: 048
  9. VALCYTE [Concomitant]
     Route: 048
  10. PANTOZOL [Concomitant]
     Route: 048
  11. REDUCTO-SPEZIAL [Concomitant]
     Route: 048
  12. COTRIM DS [Concomitant]
     Route: 048
     Dates: end: 20041129
  13. DELIX [Concomitant]
     Route: 048
  14. BAYMYCARD [Concomitant]
     Route: 048
  15. NORVASC [Concomitant]
  16. CALCIMAGON-D3 [Concomitant]
  17. MAGNESIOCARD [Concomitant]
  18. CONCOR [Concomitant]
  19. ACTRAPID [Concomitant]

REACTIONS (3)
  - BURSITIS [None]
  - EMPYEMA [None]
  - URINARY TRACT INFECTION [None]
